FAERS Safety Report 13162350 (Version 1)
Quarter: 2017Q1

REPORT INFORMATION
  Report Type: Spontaneous
  Country: SA (occurrence: SA)
  Receive Date: 20170130
  Receipt Date: 20170130
  Transmission Date: 20170428
  Serious: Yes (Death, Other)
  Sender: FDA-Public Use
  Company Number: PHHY2017SA010256

PATIENT
  Age: 14 Year
  Sex: Female

DRUGS (2)
  1. REVOLADE [Suspect]
     Active Substance: ELTROMBOPAG
     Dosage: 75 MG, UNK
     Route: 065
  2. REVOLADE [Suspect]
     Active Substance: ELTROMBOPAG
     Indication: IMMUNE THROMBOCYTOPENIC PURPURA
     Dosage: 50 MG, UNK
     Route: 065

REACTIONS (8)
  - Sudden death [Fatal]
  - Vomiting [Unknown]
  - Dehydration [Unknown]
  - Headache [Unknown]
  - Blood creatinine increased [Unknown]
  - Chest pain [Unknown]
  - Product use issue [Unknown]
  - Hepatic enzyme increased [Unknown]
